FAERS Safety Report 9201644 (Version 1)
Quarter: 2013Q2

REPORT INFORMATION
  Report Type: Spontaneous
  Country: QA (occurrence: QA)
  Receive Date: 20130401
  Receipt Date: 20130401
  Transmission Date: 20140414
  Serious: Yes (Hospitalization)
  Sender: FDA-Public Use
  Company Number: PHHY2013QA030769

PATIENT
  Age: 43 Year
  Sex: Female

DRUGS (4)
  1. GLIVEC [Suspect]
     Indication: CHRONIC MYELOID LEUKAEMIA
     Dosage: 400 MG, DAILY
  2. ANTIBIOTICS [Concomitant]
     Dosage: UNK UKN, UNK
     Route: 042
  3. STEROIDS [Concomitant]
     Dosage: UNK UKN, UNK
  4. ANTIHISTAMINES [Concomitant]
     Dosage: UNK UKN, UNK

REACTIONS (8)
  - Bronchospasm [Unknown]
  - Lung infiltration [Not Recovered/Not Resolved]
  - Pyrexia [Unknown]
  - Pleural effusion [Unknown]
  - Swelling face [Not Recovered/Not Resolved]
  - Erythema [Not Recovered/Not Resolved]
  - Cough [Unknown]
  - Skin lesion [Unknown]
